FAERS Safety Report 8111318 (Version 2)
Quarter: 2013Q1

REPORT INFORMATION
  Report Type: Spontaneous
  Country: US (occurrence: US)
  Receive Date: 20110829
  Receipt Date: 20130108
  Transmission Date: 20140127
  Serious: Yes (Hospitalization)
  Sender: FDA-Public Use
  Company Number: US-GLAXOSMITHKLINE-A0928865A

PATIENT
  Age: 50 Year
  Sex: Male

DRUGS (1)
  1. AVANDIA [Suspect]
     Indication: DIABETES MELLITUS
     Dosage: 4MG PER DAY
     Route: 048
     Dates: start: 200901, end: 20110310

REACTIONS (6)
  - Chest pain [Not Recovered/Not Resolved]
  - Arteriosclerosis [Unknown]
  - Dyspnoea [Unknown]
  - Coronary artery disease [Unknown]
  - Angioplasty [Unknown]
  - Stent placement [Unknown]
